FAERS Safety Report 9668972 (Version 1)
Quarter: 2013Q4

REPORT INFORMATION
  Report Type: Spontaneous
  Country: US (occurrence: None)
  Receive Date: 20131104
  Receipt Date: 20131104
  Transmission Date: 20140711
  Serious: No
  Sender: FDA-Public Use
  Company Number: None

PATIENT
  Age: 64 Year
  Sex: Female
  Weight: 61.24 kg

DRUGS (1)
  1. ALBUTEROL SULFATE [Suspect]
     Indication: INCREASED VISCOSITY OF NASAL SECRETION
     Dosage: 1 VIAL, FOUR TIMES DAILY
     Dates: start: 20131015, end: 20131101

REACTIONS (2)
  - Drug ineffective [None]
  - Headache [None]
